FAERS Safety Report 8585511-X (Version None)
Quarter: 2012Q3

REPORT INFORMATION
  Report Type: 
  Country: None (occurrence: None)
  Receive Date: 20120810
  Receipt Date: 20120802
  Transmission Date: 20120928
  Serious: Yes (Hospitalization, Other)
  Sender: FDA-Public Use
  Company Number: US-009507513-2011SP025633

PATIENT

DRUGS (9)
  1. NUVARING [Suspect]
     Dosage: UNK
     Dates: start: 20050101
  2. NUVARING [Suspect]
     Indication: MENORRHAGIA
     Dosage: UNK
     Dates: start: 20090201, end: 20090620
  3. COUMADIN [Suspect]
     Indication: ANTICOAGULANT THERAPY
     Dates: start: 20090620, end: 20100101
  4. CORTICOSTEROIDS (UNSPECIFIED) [Concomitant]
     Indication: VULVITIS
  5. CORTICOSTEROIDS (UNSPECIFIED) [Concomitant]
     Indication: MENORRHAGIA
  6. NUVARING [Suspect]
     Indication: ENDOMETRIOSIS
     Dosage: UNK
     Dates: start: 20081201
  7. NUVARING [Suspect]
     Dosage: UNK
  8. VITAMINS (UNSPECIFIED) [Concomitant]
     Dosage: 3-4 TIMES/WEEK
  9. NUVARING [Suspect]
     Dosage: UNK
     Route: 067
     Dates: start: 20090101, end: 20090201

REACTIONS (32)
  - MITRAL VALVE INCOMPETENCE [None]
  - HEPATIC CONGESTION [None]
  - DYSFUNCTIONAL UTERINE BLEEDING [None]
  - DYSMENORRHOEA [None]
  - VULVITIS [None]
  - MYOCARDIAL INFARCTION [None]
  - PAIN [None]
  - DILATATION VENTRICULAR [None]
  - PLACENTAL DISORDER [None]
  - TRICUSPID VALVE INCOMPETENCE [None]
  - TRANSAMINASES INCREASED [None]
  - PULMONARY EMBOLISM [None]
  - ANXIETY [None]
  - VAGINITIS BACTERIAL [None]
  - VENTRICULAR DYSFUNCTION [None]
  - PULMONARY INFARCTION [None]
  - INCORRECT DRUG ADMINISTRATION DURATION [None]
  - PULMONARY HYPERTENSION [None]
  - CORONARY ARTERY DISEASE [None]
  - ALOPECIA [None]
  - OFF LABEL USE [None]
  - HEART RATE IRREGULAR [None]
  - MUSCULOSKELETAL PAIN [None]
  - HYPERCOAGULATION [None]
  - CARPAL TUNNEL SYNDROME [None]
  - LUNG NEOPLASM [None]
  - METRORRHAGIA [None]
  - VAGINAL DISCHARGE [None]
  - INAPPROPRIATE SCHEDULE OF DRUG ADMINISTRATION [None]
  - MIGRAINE [None]
  - DYSPAREUNIA [None]
  - MENORRHAGIA [None]
